APPROVED DRUG PRODUCT: SUMATRIPTAN SUCCINATE
Active Ingredient: SUMATRIPTAN SUCCINATE
Strength: EQ 50MG BASE
Dosage Form/Route: TABLET;ORAL
Application: A219036 | Product #002 | TE Code: AB
Applicant: VKT PHARMA PRIVATE LTD
Approved: Dec 31, 2024 | RLD: No | RS: No | Type: RX